FAERS Safety Report 15793926 (Version 1)
Quarter: 2019Q1

REPORT INFORMATION
  Report Type: Spontaneous
  Country: US (occurrence: US)
  Receive Date: 20190105
  Receipt Date: 20190105
  Transmission Date: 20190417
  Serious: Yes (Death)
  Sender: FDA-Public Use
  Company Number: None

PATIENT
  Age: 69 Year
  Sex: Male
  Weight: 112.5 kg

DRUGS (1)
  1. IRBESARTAN 150 MG TAB SOLC [Suspect]
     Active Substance: IRBESARTAN

REACTIONS (4)
  - Metastasis [None]
  - Multi-organ disorder [None]
  - Lung adenocarcinoma stage IV [None]
  - Metastases to bone [None]

NARRATIVE: CASE EVENT DATE: 20181210
